FAERS Safety Report 9074543 (Version 1)
Quarter: 2013Q1

REPORT INFORMATION
  Report Type: Report from Study
  Country: US (occurrence: US)
  Receive Date: 20130129
  Receipt Date: 20130129
  Transmission Date: 20140127
  Serious: No
  Sender: FDA-Public Use
  Company Number: US-ABBOTT-12P-163-0928780-00

PATIENT
  Age: 39 Year
  Sex: Female

DRUGS (3)
  1. HUMIRA 40 MG/0.8 ML PEN [Suspect]
     Indication: RHEUMATOID ARTHRITIS
     Dates: start: 201202
  2. INSULIN [Concomitant]
     Indication: TYPE 1 DIABETES MELLITUS
     Dosage: IN AN INSULIN PUMP
  3. UNKNOWN MEDICATION [Concomitant]
     Indication: SLEEP DISORDER

REACTIONS (1)
  - Injection site pain [Recovered/Resolved]
